FAERS Safety Report 9713383 (Version 3)
Quarter: 2014Q1

REPORT INFORMATION
  Report Type: Report from Study
  Country: US (occurrence: US)
  Receive Date: 20131126
  Receipt Date: 20140124
  Transmission Date: 20141002
  Serious: Yes (Other)
  Sender: FDA-Public Use
  Company Number: PHEH2013US024513

PATIENT
  Age: 46 Year
  Sex: Female
  Weight: 58.5 kg

DRUGS (5)
  1. GILENYA [Suspect]
     Indication: MULTIPLE SCLEROSIS
     Dosage: 0.5 MG, QD
     Route: 048
     Dates: start: 20131120
  2. NUVIGIL [Concomitant]
     Indication: FATIGUE
     Route: 048
  3. LORAZEPAM [Concomitant]
     Indication: MUSCLE SPASMS
     Route: 048
  4. LORAZEPAM [Concomitant]
     Indication: ANXIETY
  5. ARICEPT [Concomitant]
     Indication: AMNESIA
     Route: 048

REACTIONS (9)
  - Swelling face [Recovered/Resolved with Sequelae]
  - Sensation of pressure [Recovered/Resolved with Sequelae]
  - Chest discomfort [Unknown]
  - Heart rate decreased [Recovered/Resolved with Sequelae]
  - Dizziness [Recovered/Resolved with Sequelae]
  - Headache [Recovered/Resolved with Sequelae]
  - Dyspnoea [Unknown]
  - Multiple sclerosis relapse [Unknown]
  - Paraesthesia [Recovered/Resolved with Sequelae]
